FAERS Safety Report 13465770 (Version 1)
Quarter: 2017Q2

REPORT INFORMATION
  Report Type: Spontaneous
  Country: US (occurrence: US)
  Receive Date: 20170421
  Receipt Date: 20170421
  Transmission Date: 20170830
  Serious: No
  Sender: FDA-Public Use
  Company Number: US-ORCHID HEALTHCARE-1065615

PATIENT
  Age: 18 Year
  Sex: Female

DRUGS (2)
  1. CEFDINIR. [Suspect]
     Active Substance: CEFDINIR
     Route: 065
     Dates: start: 20151114, end: 20151114
  2. CEFDINIR. [Suspect]
     Active Substance: CEFDINIR
     Indication: INFECTION
     Route: 065
     Dates: start: 20151113, end: 20151113

REACTIONS (5)
  - Skin exfoliation [Not Recovered/Not Resolved]
  - Hypoaesthesia [Recovered/Resolved]
  - Paraesthesia [Recovered/Resolved]
  - Erythema [Unknown]
  - Dry skin [Not Recovered/Not Resolved]

NARRATIVE: CASE EVENT DATE: 2015
